FAERS Safety Report 5470979-8 (Version None)
Quarter: 2007Q3

REPORT INFORMATION
  Report Type: 
  Country: None (occurrence: None)
  Receive Date: 20070928
  Receipt Date: 20070926
  Transmission Date: 20080115
  Serious: Yes (Hospitalization)
  Sender: FDA-Public Use
  Company Number: A0643147A

PATIENT
  Age: 18 Year
  Sex: Female
  Weight: 50 kg

DRUGS (2)
  1. CEFUROXIME [Suspect]
     Indication: TONSILLITIS
     Dosage: 500MG TWICE PER DAY
     Route: 048
     Dates: start: 20070308, end: 20070309
  2. NIMESULIDE [Concomitant]
     Route: 065
     Dates: start: 20070308, end: 20070309

REACTIONS (2)
  - TONSILLITIS [None]
  - URTICARIA [None]
